FAERS Safety Report 9162892 (Version 2)
Quarter: 2013Q1

REPORT INFORMATION
  Report Type: Spontaneous
  Country: GB (occurrence: GB)
  Receive Date: 20130314
  Receipt Date: 20130321
  Transmission Date: 20140127
  Serious: Yes (Other)
  Sender: FDA-Public Use
  Company Number: GB-PFIZER INC-2013081761

PATIENT
  Sex: Male

DRUGS (5)
  1. OXALIPLATIN [Suspect]
     Dosage: UNK
  2. AVASTIN [Interacting]
     Dosage: UNK
  3. DARUNAVIR [Suspect]
     Indication: HIV INFECTION
     Dosage: 800 MG, 1X/DAY
     Route: 048
  4. EMTRICITABINE [Concomitant]
     Indication: HIV INFECTION
     Dosage: 200 MG, 1X/DAY
  5. RALTEGRAVIR [Concomitant]
     Indication: HIV INFECTION
     Dosage: 400 MG, 2X/DAY

REACTIONS (3)
  - Drug interaction [Unknown]
  - Disease progression [Unknown]
  - Gastrointestinal carcinoma [Unknown]
